FAERS Safety Report 7527267-5 (Version None)
Quarter: 2011Q2

REPORT INFORMATION
  Report Type: 
  Country: None (occurrence: None)
  Receive Date: 20110607
  Receipt Date: 20110531
  Transmission Date: 20111010
  Serious: No
  Sender: FDA-Public Use
  Company Number: US-BIOGENIDEC-2011BI020336

PATIENT
  Sex: Female

DRUGS (1)
  1. AVONEX [Suspect]
     Indication: MULTIPLE SCLEROSIS
     Route: 030
     Dates: start: 20011101

REACTIONS (6)
  - PERIPHERAL COLDNESS [None]
  - HEAD INJURY [None]
  - MEMORY IMPAIRMENT [None]
  - PYREXIA [None]
  - NECK INJURY [None]
  - HAEMATOMA [None]
